FAERS Safety Report 11566917 (Version 1)
Quarter: 2015Q3

REPORT INFORMATION
  Report Type: Spontaneous
  Country: US (occurrence: US)
  Receive Date: 20150929
  Receipt Date: 20150929
  Transmission Date: 20151125
  Serious: Yes (Death)
  Sender: FDA-Public Use
  Company Number: US-ROCHE-ITM201505IM015278

PATIENT
  Sex: Male

DRUGS (2)
  1. ESBRIET [Suspect]
     Active Substance: PIRFENIDONE
     Route: 048
     Dates: start: 20150328
  2. ESBRIET [Suspect]
     Active Substance: PIRFENIDONE
     Indication: IDIOPATHIC PULMONARY FIBROSIS
     Route: 048
     Dates: start: 20150326

REACTIONS (6)
  - Pruritus [Not Recovered/Not Resolved]
  - Death [Fatal]
  - Rash [Not Recovered/Not Resolved]
  - Erythema [Unknown]
  - Sunburn [Not Recovered/Not Resolved]
  - Photosensitivity reaction [Unknown]
